FAERS Safety Report 25292522 (Version 3)
Quarter: 2025Q3

REPORT INFORMATION
  Report Type: Spontaneous
  Country: US (occurrence: US)
  Receive Date: 20250510
  Receipt Date: 20250801
  Transmission Date: 20251021
  Serious: No
  Sender: SANOFI AVENTIS
  Company Number: US-SA-2025SA123880

PATIENT
  Age: 28 Year
  Sex: Female

DRUGS (3)
  1. DUPIXENT [Suspect]
     Active Substance: DUPILUMAB
     Indication: Nasal polyps
     Dates: start: 2022, end: 2024
  2. DUPIXENT [Suspect]
     Active Substance: DUPILUMAB
     Dosage: 300 MG, QOW
     Route: 058
     Dates: start: 202406, end: 2025
  3. DUPIXENT [Suspect]
     Active Substance: DUPILUMAB
     Dates: start: 20250503

REACTIONS (5)
  - Back pain [Unknown]
  - Vision blurred [Unknown]
  - Nasal polyps [Recovering/Resolving]
  - Rebound effect [Unknown]
  - Nasal congestion [Unknown]

NARRATIVE: CASE EVENT DATE: 20240101
